FAERS Safety Report 7454844-2 (Version None)
Quarter: 2011Q2

REPORT INFORMATION
  Report Type: 
  Country: None (occurrence: None)
  Receive Date: 20110503
  Receipt Date: 20110426
  Transmission Date: 20111010
  Serious: Yes (Hospitalization)
  Sender: FDA-Public Use
  Company Number: BE-SANOFI-AVENTIS-2011SA025874

PATIENT
  Age: 58 Year
  Sex: Male

DRUGS (4)
  1. OXALIPLATIN [Suspect]
     Route: 065
     Dates: start: 20101104, end: 20101104
  2. FOLINIC ACID [Suspect]
     Route: 065
     Dates: start: 20101104, end: 20101104
  3. BEVACIZUMAB [Suspect]
     Route: 065
     Dates: start: 20101104, end: 20101104
  4. FLUOROURACIL [Suspect]
     Route: 065
     Dates: start: 20101104, end: 20101104

REACTIONS (1)
  - GASTROINTESTINAL PERFORATION [None]
